FAERS Safety Report 15941644 (Version 1)
Quarter: 2019Q1

REPORT INFORMATION
  Report Type: Spontaneous
  Country: US (occurrence: US)
  Receive Date: 20190209
  Receipt Date: 20190209
  Transmission Date: 20190417
  Serious: Yes (Life-Threatening, Hospitalization, Disabling, Other)
  Sender: FDA-Public Use
  Company Number: None

PATIENT
  Age: 48 Year
  Sex: Female
  Weight: 47.25 kg

DRUGS (7)
  1. Z PACK [Suspect]
     Active Substance: AZITHROMYCIN DIHYDRATE
     Indication: SINUSITIS
     Dosage: ?          QUANTITY:1 TABLET(S);?
     Route: 048
  2. ZOLPIDEM ER [Concomitant]
     Active Substance: ZOLPIDEM\ZOLPIDEM TARTRATE
  3. IMITREX [Concomitant]
     Active Substance: SUMATRIPTAN SUCCINATE
  4. DIAZEPAM. [Concomitant]
     Active Substance: DIAZEPAM
  5. ESTAZOLAM. [Concomitant]
     Active Substance: ESTAZOLAM
  6. SUDAFED [Concomitant]
     Active Substance: PSEUDOEPHEDRINE HYDROCHLORIDE
  7. ASPIRIN. [Concomitant]
     Active Substance: ASPIRIN

REACTIONS (11)
  - Lymphadenopathy [None]
  - Drug reaction with eosinophilia and systemic symptoms [None]
  - Soft tissue swelling [None]
  - Pain [None]
  - Gait disturbance [None]
  - Fatigue [None]
  - Pyrexia [None]
  - Rash [None]
  - Swelling [None]
  - Seizure [None]
  - Multi-organ disorder [None]

NARRATIVE: CASE EVENT DATE: 20190209
